FAERS Safety Report 24339059 (Version 1)
Quarter: 2024Q3

REPORT INFORMATION
  Report Type: Report from Study
  Country: GB (occurrence: GB)
  Receive Date: 20240919
  Receipt Date: 20240919
  Transmission Date: 20241016
  Serious: Yes (Other)
  Sender: SANDOZ
  Company Number: GB-SANDOZ-SDZ2024GB079937

PATIENT
  Sex: Female

DRUGS (1)
  1. HYRIMOZ [Suspect]
     Active Substance: ADALIMUMAB-ADAZ
     Indication: Psoriasis
     Dosage: 40 MG, Q2W HYRIMOZ 40MG/0.4ML SOLUTION FOR INJECTION PRE-FILLED PENS
     Route: 058
     Dates: start: 20230901

REACTIONS (12)
  - Mental impairment [Unknown]
  - Gait disturbance [Not Recovered/Not Resolved]
  - Urinary incontinence [Unknown]
  - Sensory loss [Unknown]
  - Psoriasis [Unknown]
  - Feeling abnormal [Unknown]
  - Hypoaesthesia [Unknown]
  - Arthralgia [Unknown]
  - Dizziness [Not Recovered/Not Resolved]
  - Vertigo [Unknown]
  - Pain in extremity [Unknown]
  - Nausea [Unknown]
